FAERS Safety Report 8979327 (Version 1)
Quarter: 2012Q4

REPORT INFORMATION
  Report Type: 
  Country: CH (occurrence: CH)
  Receive Date: 20121221
  Receipt Date: 20121221
  Transmission Date: 20130627
  Serious: Yes (Hospitalization)
  Sender: FDA-Public Use
  Company Number: CH-PFIZER INC-2012322617

PATIENT
  Age: 54 Year
  Sex: Female

DRUGS (1)
  1. SORTIS [Suspect]
     Indication: PURE HYPERCHOLESTEROLAEMIA
     Dosage: 80 mg, 1x/day
     Route: 048
     Dates: start: 20121010, end: 20121020

REACTIONS (3)
  - Hepatic failure [Recovering/Resolving]
  - Hepatic enzyme increased [Recovering/Resolving]
  - Jaundice hepatocellular [Recovering/Resolving]
